FAERS Safety Report 9470998 (Version 3)
Quarter: 2013Q3

REPORT INFORMATION
  Report Type: Report from Study
  Country: US (occurrence: US)
  Receive Date: 20130822
  Receipt Date: 20130829
  Transmission Date: 20140515
  Serious: Yes (Death)
  Sender: FDA-Public Use
  Company Number: US-ACTELION-A-US2013-84377

PATIENT
  Age: 79 Year
  Sex: Male

DRUGS (7)
  1. TRACLEER [Suspect]
     Indication: PULMONARY HYPERTENSION
     Dosage: UNK
     Route: 048
     Dates: end: 20130811
  2. N-ACETYLCYSTEINE [Concomitant]
  3. PIRFENIDONE [Concomitant]
  4. ALBUTEROL [Concomitant]
  5. FLOMAX [Concomitant]
  6. FAMOTIDINE [Concomitant]
  7. HYDROCHLOROTH [Concomitant]

REACTIONS (6)
  - Cardio-respiratory arrest [Fatal]
  - Respiratory failure [Fatal]
  - Asthma [Fatal]
  - Pulmonary fibrosis [Fatal]
  - Malaise [Unknown]
  - Disease progression [Unknown]
